FAERS Safety Report 5232715-X (Version None)
Quarter: 2007Q1

REPORT INFORMATION
  Report Type: 
  Country: None (occurrence: None)
  Receive Date: 20070206
  Receipt Date: 20070206
  Transmission Date: 20070707
  Serious: Yes (Disabling)
  Sender: FDA-Public Use
  Company Number: None

PATIENT
  Sex: Female
  Weight: 84.369 kg

DRUGS (2)
  1. MORPHINE [Suspect]
     Indication: CHEST PAIN
     Dosage: 10 MG ONE TIME DOSE IV
     Route: 042
     Dates: start: 20061127, end: 20061127
  2. MORPHINE [Suspect]
     Indication: SICKLE CELL ANAEMIA WITH CRISIS
     Dosage: 10 MG ONE TIME DOSE IV
     Route: 042
     Dates: start: 20061127, end: 20061127

REACTIONS (2)
  - DOCUMENTED HYPERSENSITIVITY TO ADMINISTERED DRUG [None]
  - MEDICATION ERROR [None]
